FAERS Safety Report 6745526-0 (Version None)
Quarter: 2010Q2

REPORT INFORMATION
  Report Type: 
  Country: None (occurrence: None)
  Receive Date: 20100528
  Receipt Date: 20100520
  Transmission Date: 20101027
  Serious: Yes (Other)
  Sender: FDA-Public Use
  Company Number: US-JNJFOC-20100404813

PATIENT
  Sex: Male
  Weight: 77.11 kg

DRUGS (21)
  1. FENTANYL CITRATE [Suspect]
     Indication: PAIN
     Route: 062
  2. FENTANYL CITRATE [Suspect]
     Route: 062
  3. FENTANYL CITRATE [Suspect]
     Dosage: 100 UG/HR (SEVEN PATCHES) AND ONE 50 UG/HR PATCH
     Route: 062
  4. AMBIEN [Concomitant]
     Route: 048
  5. ATIVAN [Concomitant]
     Indication: ANXIETY
     Route: 048
  6. COMPAZINE [Concomitant]
     Indication: NAUSEA
     Route: 048
  7. HYDROMORPHONE HCL [Concomitant]
     Indication: PAIN
     Route: 048
  8. GAS  X [Concomitant]
     Indication: ABDOMINAL DISTENSION
     Dosage: THIN STRIPS
     Route: 048
  9. KLONOPIN [Concomitant]
     Indication: ANXIETY
     Dosage: THIN STRIPS
     Route: 048
  10. LOVENOX [Concomitant]
     Indication: ANTICOAGULANT THERAPY
     Dosage: THIN STRIPS
     Route: 058
  11. MUCINEX [Concomitant]
     Indication: DYSPEPSIA
     Dosage: THIN STRIPS
     Route: 048
  12. REGLAN [Concomitant]
     Route: 048
  13. RESTORIL [Concomitant]
     Route: 048
  14. SENOKOT [Concomitant]
     Route: 048
  15. ZOMAX [Concomitant]
     Route: 048
  16. TRIPLE ANTIBIOTIC [Concomitant]
     Route: 048
  17. TENOFOVIR [Concomitant]
     Indication: HIV INFECTION
     Route: 048
  18. VIREAD [Concomitant]
     Indication: HIV INFECTION
     Route: 048
  19. ZESTRIL [Concomitant]
     Route: 048
  20. ZOVIRAX [Concomitant]
     Indication: HIV INFECTION
     Route: 048
  21. HUMULIN INSULIN N [Concomitant]
     Route: 058

REACTIONS (4)
  - DRUG EFFECT DECREASED [None]
  - DRUG INEFFECTIVE [None]
  - STAPHYLOCOCCAL INFECTION [None]
  - THERAPEUTIC RESPONSE DECREASED [None]
